FAERS Safety Report 15183155 (Version 1)
Quarter: 2018Q4

REPORT INFORMATION
  Report Type: Spontaneous
  Country: US (occurrence: US)
  Receive Date: 20180723
  Receipt Date: 20180723
  Transmission Date: 20190204
  Serious: No
  Sender: FDA-Public Use
  Company Number: US-AYTU BIOSCIENCES, INC.-2018AYT000054

PATIENT

DRUGS (3)
  1. NATESTO [Suspect]
     Active Substance: TESTOSTERONE
     Dosage: 1 PUFF IN EACH NOSTRIL, TID
     Route: 045
  2. NATESTO [Suspect]
     Active Substance: TESTOSTERONE
     Indication: BLOOD TESTOSTERONE DECREASED
     Dosage: 1 PUFF IN EACH NOSTRIL, BID
     Route: 045
     Dates: start: 2016
  3. NATESTO [Suspect]
     Active Substance: TESTOSTERONE
     Dosage: 1 PUFF IN EACH NOSTRIL, QID
     Route: 045

REACTIONS (3)
  - Intentional product misuse [Unknown]
  - Drug effect decreased [Recovered/Resolved]
  - Blood testosterone decreased [Recovered/Resolved]

NARRATIVE: CASE EVENT DATE: 2016
